FAERS Safety Report 6842588-7 (Version None)
Quarter: 2010Q3

REPORT INFORMATION
  Report Type: 
  Country: None (occurrence: None)
  Receive Date: 20100714
  Receipt Date: 20070727
  Transmission Date: 20110219
  Serious: No
  Sender: FDA-Public Use
  Company Number: US-PFIZER INC-2007064324

PATIENT
  Sex: Female
  Weight: 83.9 kg

DRUGS (9)
  1. CHANTIX [Suspect]
     Indication: SMOKING CESSATION THERAPY
     Dates: start: 20070101
  2. PROVIGIL [Concomitant]
  3. ADDERALL 10 [Concomitant]
  4. VICODIN [Concomitant]
  5. LEXAPRO [Concomitant]
  6. LAMICTAL [Concomitant]
  7. RISPERDAL [Concomitant]
  8. TEMAZEPAM [Concomitant]
  9. CLONAZEPAM [Concomitant]

REACTIONS (2)
  - FATIGUE [None]
  - LETHARGY [None]
